FAERS Safety Report 8365533-4 (Version None)
Quarter: 2012Q2

REPORT INFORMATION
  Report Type: 
  Country: None (occurrence: None)
  Receive Date: 20120516
  Receipt Date: 20120504
  Transmission Date: 20120825
  Serious: Yes (Other)
  Sender: FDA-Public Use
  Company Number: US-ELI_LILLY_AND_COMPANY-US201205002601

PATIENT
  Age: 25 Year
  Sex: Female

DRUGS (4)
  1. LITHIUM CARBONATE [Concomitant]
  2. LYRICA [Concomitant]
  3. LEVOTHYROXINE SODIUM [Concomitant]
  4. CYMBALTA [Suspect]
     Dosage: 60 MG, QD

REACTIONS (1)
  - GASTROINTESTINAL TUBE INSERTION [None]
